FAERS Safety Report 10800770 (Version 2)
Quarter: 2015Q1

REPORT INFORMATION
  Report Type: Spontaneous
  Country: US (occurrence: US)
  Receive Date: 20150216
  Receipt Date: 20150216
  Transmission Date: 20150721
  Serious: No
  Sender: FDA-Public Use
  Company Number: US-ALLERGAN-1424766US

PATIENT
  Sex: Female

DRUGS (3)
  1. THERATEARS [Concomitant]
     Active Substance: CARBOXYMETHYLCELLULOSE SODIUM
  2. RESTASIS [Suspect]
     Active Substance: CYCLOSPORINE
     Indication: DRY EYE
     Dosage: UNK
     Route: 047
     Dates: start: 201405
  3. REFRESH OPTIVE [Concomitant]
     Active Substance: CARBOXYMETHYLCELLULOSE SODIUM\GLYCERIN

REACTIONS (7)
  - Eye pain [Unknown]
  - Drug ineffective [Unknown]
  - Incorrect dose administered [Unknown]
  - Rash erythematous [Unknown]
  - Hordeolum [Unknown]
  - Eye disorder [Unknown]
  - Hyperaesthesia [Unknown]
